FAERS Safety Report 9234921 (Version 1)
Quarter: 2013Q2

REPORT INFORMATION
  Report Type: Spontaneous
  Country: US (occurrence: US)
  Receive Date: 20130416
  Receipt Date: 20130416
  Transmission Date: 20140414
  Serious: Yes (Life-Threatening, Hospitalization, Other)
  Sender: FDA-Public Use
  Company Number: US-ELI_LILLY_AND_COMPANY-US201304003118

PATIENT
  Age: 52 Year
  Sex: Female

DRUGS (3)
  1. DULOXETINE HYDROCHLORIDE [Suspect]
     Indication: DEPRESSION
  2. ESCITALOPRAM [Concomitant]
  3. LINEZOLID [Interacting]
     Route: 042

REACTIONS (7)
  - Thoracic vertebral fracture [Unknown]
  - Serotonin syndrome [Recovered/Resolved]
  - Necrotising fasciitis [Unknown]
  - Respiratory tract infection [Unknown]
  - Infection [Unknown]
  - Osteomyelitis [Unknown]
  - Drug interaction [Recovered/Resolved]
